FAERS Safety Report 19999016 (Version 1)
Quarter: 2021Q4

REPORT INFORMATION
  Report Type: Spontaneous
  Country: US (occurrence: US)
  Receive Date: 20211026
  Receipt Date: 20211026
  Transmission Date: 20220303
  Serious: Yes (Death, Hospitalization)
  Sender: FDA-Public Use
  Company Number: US-PFIZER INC-202101428614

PATIENT
  Sex: Female

DRUGS (1)
  1. PROPOFOL [Suspect]
     Active Substance: PROPOFOL
     Indication: Sedation
     Dosage: UNK,FOR 12 HOURS

REACTIONS (4)
  - Encephalitis viral [Fatal]
  - Pyrexia [Unknown]
  - Confusional state [Unknown]
  - Paranoia [Unknown]
